FAERS Safety Report 5729523-X (Version None)
Quarter: 2008Q2

REPORT INFORMATION
  Report Type: 
  Country: None (occurrence: None)
  Receive Date: 20080506
  Receipt Date: 20080424
  Transmission Date: 20081010
  Serious: Yes (Other)
  Sender: FDA-Public Use
  Company Number: FR-GENENTECH-259931

PATIENT
  Sex: Female

DRUGS (1)
  1. LUCENTIS [Suspect]
     Indication: DRUG USE FOR UNKNOWN INDICATION
     Dosage: UNK, UNKNOWN
     Route: 031
     Dates: start: 20080301

REACTIONS (2)
  - IRIDOCYCLITIS [None]
  - KERATITIS [None]
